FAERS Safety Report 4917839-6 (Version None)
Quarter: 2006Q1

REPORT INFORMATION
  Report Type: 
  Country: None (occurrence: None)
  Receive Date: 20060214
  Receipt Date: 20060209
  Transmission Date: 20060701
  Serious: Yes (Hospitalization)
  Sender: FDA-Public Use
  Company Number: 2005BI020623

PATIENT
  Age: 55 Year
  Sex: Male

DRUGS (1)
  1. AVONEX [Suspect]
     Indication: MULTIPLE SCLEROSIS
     Dosage: 30 UG; QW; IM
     Route: 030
     Dates: start: 20040702, end: 20050401

REACTIONS (5)
  - ABASIA [None]
  - CSF OLIGOCLONAL BAND PRESENT [None]
  - DISEASE RECURRENCE [None]
  - MUSCULOSKELETAL STIFFNESS [None]
  - PARALYSIS [None]
